FAERS Safety Report 4690195-7 (Version None)
Quarter: 2005Q2

REPORT INFORMATION
  Report Type: 
  Country: None (occurrence: None)
  Receive Date: 20050613
  Receipt Date: 20050531
  Transmission Date: 20051028
  Serious: Yes (Other)
  Sender: FDA-Public Use
  Company Number: 214894

PATIENT
  Age: 71 Year
  Sex: Female
  Weight: 53.9 kg

DRUGS (13)
  1. RITUXAN [Suspect]
     Indication: NON-HODGKIN'S LYMPHOMA
     Dosage: SEE IMAGE
     Route: 041
     Dates: start: 20041208, end: 20041208
  2. RITUXAN [Suspect]
     Indication: NON-HODGKIN'S LYMPHOMA
     Dosage: SEE IMAGE
     Route: 041
     Dates: start: 20050112, end: 20050112
  3. CYCLOPHOSPHAMIDE [Suspect]
     Indication: NON-HODGKIN'S LYMPHOMA
     Dosage: SEE IMAGE
     Route: 041
     Dates: start: 20041118, end: 20041122
  4. CYCLOPHOSPHAMIDE [Suspect]
     Indication: NON-HODGKIN'S LYMPHOMA
     Dosage: SEE IMAGE
     Route: 041
     Dates: start: 20041210, end: 20041214
  5. CYCLOPHOSPHAMIDE [Suspect]
     Indication: NON-HODGKIN'S LYMPHOMA
     Dosage: SEE IMAGE
     Route: 041
     Dates: start: 20050114, end: 20050118
  6. DOXORUBICIN HYDROCHLORIDE [Suspect]
     Indication: NON-HODGKIN'S LYMPHOMA
     Dosage: SEE IMAGE
     Route: 041
     Dates: start: 20041118, end: 20041122
  7. DOXORUBICIN HYDROCHLORIDE [Suspect]
     Indication: NON-HODGKIN'S LYMPHOMA
     Dosage: SEE IMAGE
     Route: 041
     Dates: start: 20041210, end: 20041214
  8. DOXORUBICIN HYDROCHLORIDE [Suspect]
     Indication: NON-HODGKIN'S LYMPHOMA
     Dosage: SEE IMAGE
     Route: 041
     Dates: start: 20050114, end: 20050118
  9. ONCOVIN [Suspect]
     Indication: NON-HODGKIN'S LYMPHOMA
     Dosage: SEE IMAGE
     Route: 041
     Dates: start: 20041118, end: 20041122
  10. ONCOVIN [Suspect]
     Indication: NON-HODGKIN'S LYMPHOMA
     Dosage: SEE IMAGE
     Route: 041
     Dates: start: 20041210, end: 20041214
  11. ONCOVIN [Suspect]
     Indication: NON-HODGKIN'S LYMPHOMA
     Dosage: SEE IMAGE
     Route: 041
     Dates: start: 20050114, end: 20050118
  12. PREDONINE (PREDNISOLONE ACETATE, PREDNISOLONE, PREDNISOLONE SODIUM SUC [Suspect]
     Indication: NON-HODGKIN'S LYMPHOMA
     Dosage: 65 MG, ORAL
     Route: 048
  13. WARFARIN POTASSIUM [Concomitant]

REACTIONS (2)
  - AORTIC THROMBOSIS [None]
  - RESPIRATORY MONILIASIS [None]
